APPROVED DRUG PRODUCT: OXTRIPHYLLINE
Active Ingredient: OXTRIPHYLLINE
Strength: 200MG
Dosage Form/Route: TABLET, DELAYED RELEASE;ORAL
Application: A087835 | Product #001
Applicant: WATSON LABORATORIES INC
Approved: Aug 25, 1983 | RLD: No | RS: No | Type: DISCN